FAERS Safety Report 8302140-3 (Version None)
Quarter: 2012Q2

REPORT INFORMATION
  Report Type: 
  Country: None (occurrence: None)
  Receive Date: 20120420
  Receipt Date: 20120411
  Transmission Date: 20120825
  Serious: Yes (Hospitalization)
  Sender: FDA-Public Use
  Company Number: FR-BRISTOL-MYERS SQUIBB COMPANY-16519340

PATIENT
  Age: 81 Year
  Sex: Female

DRUGS (3)
  1. IRBESARTAN AND HYDROCHLOROTHIAZIDE [Interacting]
     Indication: HYPERTENSION
     Dosage: 1DF=1 TAB
     Route: 048
     Dates: start: 20110101, end: 20120131
  2. ESCITALOPRAM [Interacting]
     Indication: DEPRESSION
     Dosage: TABS
     Dates: start: 20120123, end: 20120130
  3. NEXIUM [Suspect]
     Indication: GASTRITIS
     Dosage: TABS
     Dates: start: 20120128, end: 20120131

REACTIONS (3)
  - HYPONATRAEMIC ENCEPHALOPATHY [None]
  - HYPONATRAEMIA [None]
  - DRUG INTERACTION [None]
